FAERS Safety Report 10410083 (Version 1)
Quarter: 2014Q3

REPORT INFORMATION
  Report Type: Spontaneous
  Country: US (occurrence: None)
  Receive Date: 20140708
  Receipt Date: 20140708
  Transmission Date: 20150326
  Serious: Yes (Hospitalization)
  Sender: FDA-Public Use
  Company Number: AUR-APL-2014-06165

PATIENT
  Age: 33 Year
  Sex: Female

DRUGS (2)
  1. ZOLPIDEM [Suspect]
     Active Substance: ZOLPIDEM\ZOLPIDEM TARTRATE
     Indication: INSOMNIA
  2. CLONAZEPAM (CLONAZEPAM) [Concomitant]

REACTIONS (13)
  - Illusion [None]
  - Hallucination, visual [None]
  - Schizoaffective disorder [None]
  - Overdose [None]
  - Insomnia [None]
  - Suicidal ideation [None]
  - Depressed mood [None]
  - Tremor [None]
  - Gaze palsy [None]
  - Condition aggravated [None]
  - Paranoia [None]
  - Hallucination, auditory [None]
  - Disorientation [None]
